FAERS Safety Report 8033778 (Version 3)
Quarter: 2014Q1

REPORT INFORMATION
  Report Type: Spontaneous
  Country: IN (occurrence: IN)
  Receive Date: 20110713
  Receipt Date: 20140124
  Transmission Date: 20141002
  Serious: Yes (Other)
  Sender: FDA-Public Use
  Company Number: IN-MYLANLABS-2011S1013926

PATIENT
  Age: 25 Year
  Sex: Female

DRUGS (4)
  1. DOSULEPIN [Suspect]
     Indication: DEPRESSION
     Route: 065
  2. SERTRALINE [Interacting]
     Indication: DEPRESSION
     Dosage: OVER 4 DAY PERIOD
     Route: 065
  3. SERTRALINE [Interacting]
     Indication: DEPRESSION
     Route: 065
  4. PANTOPRAZOLE [Concomitant]
     Indication: ABDOMINAL PAIN UPPER
     Dosage: BEFORE BREAKFAST

REACTIONS (4)
  - Hypomania [Recovered/Resolved]
  - Extrapyramidal disorder [Recovered/Resolved]
  - Drug interaction [Recovered/Resolved]
  - Abdominal pain upper [Unknown]
